FAERS Safety Report 17291993 (Version 1)
Quarter: 2020Q1

REPORT INFORMATION
  Report Type: Spontaneous
  Country: MY (occurrence: MY)
  Receive Date: 20200121
  Receipt Date: 20200121
  Transmission Date: 20200409
  Serious: Yes (Other)
  Sender: FDA-Public Use
  Company Number: MY-BAYER-2019-222498

PATIENT
  Age: 27 Year
  Sex: Male

DRUGS (1)
  1. ULTRAVIST [Suspect]
     Active Substance: IOPROMIDE
     Indication: COMPUTERISED TOMOGRAM
     Dosage: 1.246 G, ONCE
     Route: 042

REACTIONS (2)
  - Anaphylactic shock [Recovered/Resolved]
  - Generalised tonic-clonic seizure [Recovered/Resolved]
